FAERS Safety Report 20132357 (Version 1)
Quarter: 2021Q4

REPORT INFORMATION
  Report Type: Spontaneous
  Country: CA (occurrence: CA)
  Receive Date: 20211130
  Receipt Date: 20211130
  Transmission Date: 20220303
  Serious: Yes (Hospitalization, Other)
  Sender: FDA-Public Use
  Company Number: CA-SA-SAC20211126000199

PATIENT
  Sex: Female

DRUGS (16)
  1. LEFLUNOMIDE [Suspect]
     Active Substance: LEFLUNOMIDE
     Indication: Product used for unknown indication
     Dosage: 10 MG, QD
     Route: 048
  2. DICLOFENAC [Suspect]
     Active Substance: DICLOFENAC
     Indication: Product used for unknown indication
     Dosage: 100 MG, QD
  3. METHOTREXATE [Suspect]
     Active Substance: METHOTREXATE
     Indication: Rheumatoid arthritis
     Dosage: UNK UNK, QW
     Route: 030
  4. MYOCHRYSINE [Suspect]
     Active Substance: GOLD SODIUM THIOMALATE
     Indication: Product used for unknown indication
     Dosage: 50 MG
     Route: 030
  5. ENBREL [Suspect]
     Active Substance: ETANERCEPT
     Indication: Rheumatoid arthritis
     Dosage: UNK
  6. RINVOQ [Suspect]
     Active Substance: UPADACITINIB
     Indication: Product used for unknown indication
     Dosage: UNK
     Route: 048
  7. ACTEMRA [Suspect]
     Active Substance: TOCILIZUMAB
     Indication: Product used for unknown indication
     Dosage: UNK
  8. HUMIRA [Suspect]
     Active Substance: ADALIMUMAB
     Indication: Product used for unknown indication
     Dosage: UNK
     Route: 058
  9. VIOXX [Concomitant]
     Active Substance: ROFECOXIB
     Dosage: 25 MG, QD
  10. XELJANZ [Concomitant]
     Active Substance: TOFACITINIB CITRATE
     Indication: Rheumatoid arthritis
     Dosage: 5 MG, BID
  11. NAPROXEN [Concomitant]
     Active Substance: NAPROXEN
  12. PREDNISONE [Concomitant]
     Active Substance: PREDNISONE
     Indication: Rheumatoid arthritis
     Route: 048
  13. HYDROXYCHLOROQUINE [Concomitant]
     Active Substance: HYDROXYCHLOROQUINE
     Dosage: 200 MG, BID
     Route: 048
  14. HYDROXYCHLOROQUINE SULFATE [Concomitant]
     Active Substance: HYDROXYCHLOROQUINE SULFATE
  15. AZATHIOPRINE [Concomitant]
     Active Substance: AZATHIOPRINE
     Dosage: UNK UNK, QD
  16. MELOXICAM [Concomitant]
     Active Substance: MELOXICAM
     Dosage: 15 MG, QD

REACTIONS (15)
  - Abdominal discomfort [Recovered/Resolved]
  - Intra-abdominal fluid collection [Recovered/Resolved]
  - Joint swelling [Recovered/Resolved]
  - Hepatic fibrosis [Recovered/Resolved]
  - Drug intolerance [Recovered/Resolved]
  - Malaise [Recovered/Resolved]
  - Abscess [Recovered/Resolved]
  - Arthralgia [Recovered/Resolved]
  - Post procedural complication [Recovered/Resolved]
  - Interstitial lung disease [Recovered/Resolved]
  - Localised infection [Recovered/Resolved]
  - Sepsis [Recovered/Resolved]
  - Spinal cord infection [Recovered/Resolved]
  - Urinary tract infection [Recovered/Resolved]
  - Drug ineffective [Unknown]
